FAERS Safety Report 8894907 (Version 1)
Quarter: 2012Q4

REPORT INFORMATION
  Report Type: 
  Country: BR (occurrence: BR)
  Receive Date: 20121108
  Receipt Date: 20121108
  Transmission Date: 20130627
  Serious: Yes (Other)
  Sender: FDA-Public Use
  Company Number: PHHY2012BR101080

PATIENT

DRUGS (1)
  1. CODATEN [Suspect]

REACTIONS (1)
  - Neoplasm malignant [Unknown]
